FAERS Safety Report 15338267 (Version 2)
Quarter: 2018Q4

REPORT INFORMATION
  Report Type: Spontaneous
  Country: US (occurrence: US)
  Receive Date: 20180831
  Receipt Date: 20181001
  Transmission Date: 20190204
  Serious: Yes (Hospitalization)
  Sender: FDA-Public Use
  Company Number: US-APOTEX-2018AP019616

PATIENT
  Age: 79 Year
  Sex: Female

DRUGS (7)
  1. NORTHERA [Suspect]
     Active Substance: DROXIDOPA
     Indication: SYNCOPE
     Dosage: 100 MG, TID
     Route: 065
     Dates: start: 20180809
  2. NORTHERA [Suspect]
     Active Substance: DROXIDOPA
     Indication: PARKINSON^S DISEASE
     Dosage: 200 MG, TID
     Route: 065
     Dates: start: 20180620
  3. MIDODRINE [Suspect]
     Active Substance: MIDODRINE
     Indication: PRODUCT USED FOR UNKNOWN INDICATION
     Dosage: 5 MG, TID
     Route: 065
  4. NORTHERA [Suspect]
     Active Substance: DROXIDOPA
     Indication: ORTHOSTATIC HYPOTENSION
     Dosage: 100 MG, UNKNOWN
     Route: 065
     Dates: start: 20180803
  5. NORTHERA [Suspect]
     Active Substance: DROXIDOPA
     Indication: DIZZINESS
     Dosage: 400 MG, TID
     Route: 065
  6. NORTHERA [Suspect]
     Active Substance: DROXIDOPA
     Indication: DIZZINESS
     Dosage: 200 MG, TID
     Route: 065
     Dates: start: 20180807, end: 20180809
  7. NORTHERA [Suspect]
     Active Substance: DROXIDOPA
     Indication: CIRCULATORY COLLAPSE

REACTIONS (10)
  - Vomiting [Unknown]
  - Dizziness [Recovering/Resolving]
  - Retching [Unknown]
  - Nausea [Recovering/Resolving]
  - Fatigue [Unknown]
  - Malaise [Unknown]
  - Abdominal discomfort [Unknown]
  - Decreased appetite [Unknown]
  - Feeling abnormal [Unknown]
  - Headache [Unknown]

NARRATIVE: CASE EVENT DATE: 20180802
